FAERS Safety Report 9494874 (Version 3)
Quarter: 2013Q4

REPORT INFORMATION
  Report Type: Spontaneous
  Country: US (occurrence: US)
  Receive Date: 20130903
  Receipt Date: 20131223
  Transmission Date: 20140711
  Serious: Yes (Other)
  Sender: FDA-Public Use
  Company Number: US-SHIONOGI, INC-2013000257

PATIENT
  Age: 43 Year
  Sex: Female
  Weight: 54.42 kg

DRUGS (4)
  1. OSPHENA [Suspect]
     Indication: ATROPHIC VULVOVAGINITIS
     Dosage: 60 MG, QD
     Route: 048
     Dates: start: 20130731, end: 20130821
  2. OSPHENA [Suspect]
     Indication: VULVOVAGINAL DRYNESS
  3. ALLEGRA [Concomitant]
     Indication: HYPERSENSITIVITY
     Dosage: 180 MG, QD
     Route: 048
  4. XOPENEX [Concomitant]
     Indication: ASTHMA EXERCISE INDUCED
     Dosage: UNK, PRN
     Route: 055
     Dates: start: 2007

REACTIONS (4)
  - Deafness neurosensory [Recovering/Resolving]
  - Insomnia [Unknown]
  - Restless legs syndrome [Unknown]
  - Myalgia [Unknown]
